FAERS Safety Report 11222574 (Version 3)
Quarter: 2015Q4

REPORT INFORMATION
  Report Type: Spontaneous
  Country: IL (occurrence: IL)
  Receive Date: 20150626
  Receipt Date: 20151001
  Transmission Date: 20160304
  Serious: Yes (Hospitalization)
  Sender: FDA-Public Use
  Company Number: IL-JNJFOC-20150616242

PATIENT
  Sex: Female

DRUGS (1)
  1. SIMPONI [Suspect]
     Active Substance: GOLIMUMAB
     Indication: ANKYLOSING SPONDYLITIS
     Dosage: STOPPED FOR 2 MONTHS
     Route: 058
     Dates: start: 20130317

REACTIONS (8)
  - Asthma [Recovered/Resolved]
  - Crohn^s disease [Unknown]
  - Ankylosing spondylitis [Not Recovered/Not Resolved]
  - Skin discolouration [Recovered/Resolved]
  - Helicobacter infection [Unknown]
  - Dyspnoea [Recovered/Resolved]
  - Colitis [Unknown]
  - Pyrexia [Recovered/Resolved]

NARRATIVE: CASE EVENT DATE: 2014
